FAERS Safety Report 10169262 (Version 2)
Quarter: 2014Q2

REPORT INFORMATION
  Report Type: Spontaneous
  Country: ES (occurrence: ES)
  Receive Date: 20140513
  Receipt Date: 20140513
  Transmission Date: 20141212
  Serious: Yes (Death, Hospitalization)
  Sender: FDA-Public Use
  Company Number: ES-PFIZER INC-2014130205

PATIENT
  Age: 84 Year
  Sex: Female

DRUGS (4)
  1. BESITRAN [Suspect]
     Dosage: 50 MG, 1X/DAY
     Route: 048
     Dates: start: 20130606
  2. SINTROM [Interacting]
     Indication: ATRIAL FIBRILLATION
     Dosage: UNK
     Route: 048
     Dates: start: 20130606
  3. ATORVASTATIN [Concomitant]
     Indication: DYSLIPIDAEMIA
     Dosage: 20 MG, 1X/DAY
     Route: 048
     Dates: start: 20130606
  4. OMEPRAZOL [Concomitant]
     Indication: CHRONIC GASTRITIS
     Dosage: 20 MG, 1X/DAY
     Route: 048
     Dates: start: 20130606

REACTIONS (3)
  - Cardiac failure congestive [Fatal]
  - Drug interaction [Fatal]
  - Gastric haemorrhage [Recovered/Resolved]
